FAERS Safety Report 5253322-9 (Version None)
Quarter: 2007Q1

REPORT INFORMATION
  Report Type: 
  Country: None (occurrence: None)
  Receive Date: 20070301
  Receipt Date: 20070220
  Transmission Date: 20070707
  Serious: Yes (Hospitalization, Other)
  Sender: FDA-Public Use
  Company Number: US-JNJFOC-20070100747

PATIENT
  Sex: Male

DRUGS (6)
  1. REMICADE [Suspect]
     Dosage: RECEIVED 3 INFUSIONS ON UNKNOWN DATES.
     Route: 042
  2. REMICADE [Suspect]
     Dosage: RECEIVED 3 INFUSIONS ON UNKNOWN DATES.
     Route: 042
  3. REMICADE [Suspect]
     Dosage: RECEIVED 3 INFUSIONS ON UNKNOWN DATES.
     Route: 042
  4. REMICADE [Suspect]
     Dosage: RECEIVED 3 INFUSIONS ON UNKNOWN DATES.
     Route: 042
  5. REMICADE [Suspect]
     Indication: RHEUMATOID ARTHRITIS
     Dosage: RECEIVED 3 INFUSIONS ON UNKNOWN DATES.
     Route: 042
  6. UNSPECIFIED BLOOD PRESSURE MEDICATION [Concomitant]

REACTIONS (4)
  - ARTHRITIS [None]
  - FALL [None]
  - INJURY [None]
  - MENINGITIS ASEPTIC [None]
